FAERS Safety Report 17581460 (Version 2)
Quarter: 2020Q1

REPORT INFORMATION
  Report Type: Spontaneous
  Country: RU (occurrence: RU)
  Receive Date: 20200325
  Receipt Date: 20200326
  Transmission Date: 20200409
  Serious: Yes (Hospitalization, Other)
  Sender: FDA-Public Use
  Company Number: RU-ROCHE-2568425

PATIENT
  Age: 64 Year
  Sex: Female

DRUGS (4)
  1. RITUXIMAB. [Suspect]
     Active Substance: RITUXIMAB
     Indication: CHRONIC LYMPHOCYTIC LEUKAEMIA
     Dosage: 1ST COURSE - 375MG/M2 D1, FOLLOWING COURSES 500MG/M2 D1
     Route: 058
     Dates: start: 20150904, end: 20151130
  2. FLUDARABINE [Suspect]
     Active Substance: FLUDARABINE PHOSPHATE
     Dosage: D1-3 OF EACH TREATMENT COURSE
     Route: 042
     Dates: start: 20151030, end: 20151130
  3. CYCLOPHOSPHAMIDE. [Suspect]
     Active Substance: CYCLOPHOSPHAMIDE
     Indication: CHRONIC LYMPHOCYTIC LEUKAEMIA
     Dosage: D1-3 OF EACH TREATMENT COURSE
     Route: 041
     Dates: start: 20150904, end: 20151130
  4. FLUDARABINE [Suspect]
     Active Substance: FLUDARABINE PHOSPHATE
     Indication: CHRONIC LYMPHOCYTIC LEUKAEMIA
     Dosage: D1-3 OF EACH TREATMENT COURSE
     Route: 042
     Dates: start: 20150904, end: 20151005

REACTIONS (15)
  - Multiple organ dysfunction syndrome [Recovered/Resolved]
  - Neutropenia [Unknown]
  - Hypocoagulable state [Recovered/Resolved]
  - Staphylococcal bacteraemia [Recovered/Resolved]
  - Respiratory tract infection viral [Unknown]
  - Febrile neutropenia [Recovered/Resolved]
  - Encephalitis [Recovered/Resolved]
  - Cerebral haemorrhage [Recovered/Resolved]
  - Escherichia sepsis [Recovered/Resolved]
  - Septic shock [Recovered/Resolved]
  - Oral herpes [Recovered/Resolved]
  - Central nervous system leukaemia [Recovered/Resolved]
  - Pancytopenia [Recovered/Resolved]
  - Stupor [Recovered/Resolved]
  - Sepsis [Recovered/Resolved]

NARRATIVE: CASE EVENT DATE: 201604
